FAERS Safety Report 5905506-1 (Version None)
Quarter: 2008Q4

REPORT INFORMATION
  Report Type: 
  Country: None (occurrence: None)
  Receive Date: 20081001
  Receipt Date: 20081001
  Transmission Date: 20090506
  Serious: No
  Sender: FDA-Public Use
  Company Number: None

PATIENT
  Age: 71 Year
  Sex: Male
  Weight: 90.7194 kg

DRUGS (1)
  1. XYLOCAINE [Suspect]
     Indication: ANAESTHESIA
     Dosage: 5 GTTS Q 15 MIN. INTRAOCULAR
     Route: 031
     Dates: start: 20080922, end: 20080922

REACTIONS (1)
  - PROCEDURAL PAIN [None]
